FAERS Safety Report 10184657 (Version 1)
Quarter: 2014Q2

REPORT INFORMATION
  Report Type: Spontaneous
  Country: IT (occurrence: None)
  Receive Date: 20140519
  Receipt Date: 20140519
  Transmission Date: 20141212
  Serious: Yes (Hospitalization)
  Sender: FDA-Public Use
  Company Number: 2014STPI000206

PATIENT
  Age: 46 Year
  Sex: Male

DRUGS (7)
  1. MATULANE [Suspect]
     Indication: ANAPLASTIC OLIGODENDROGLIOMA
     Route: 048
     Dates: start: 20140218, end: 20140221
  2. VINCRISTINE SULFATE [Suspect]
     Indication: ANAPLASTIC OLIGODENDROGLIOMA
     Route: 042
     Dates: start: 20140128, end: 20140128
  3. LEVETIRACETAM [Suspect]
     Indication: PRODUCT USED FOR UNKNOWN INDICATION
     Dosage: 2 DF, UNK, ORAL
     Route: 048
     Dates: start: 201311
  4. NORSET [Suspect]
     Indication: PRODUCT USED FOR UNKNOWN INDICATION
     Dosage: 1 DF, UNK, ORAL
     Route: 048
     Dates: start: 201311, end: 20131202
  5. IMOVANE [Suspect]
     Indication: PRODUCT USED FOR UNKNOWN INDICATION
     Route: 048
     Dates: start: 20131202
  6. BELUSTINE [Suspect]
     Indication: PRODUCT USED FOR UNKNOWN INDICATION
     Route: 048
     Dates: start: 20140121, end: 20140121
  7. ALPRAZOLAM (ALPRAZOLAM) [Concomitant]

REACTIONS (4)
  - Suicide attempt [None]
  - Intentional self-injury [None]
  - Vascular injury [None]
  - Laryngeal injury [None]
